FAERS Safety Report 9418029 (Version 1)
Quarter: 2013Q3

REPORT INFORMATION
  Report Type: Spontaneous
  Country: US (occurrence: US)
  Receive Date: 20130724
  Receipt Date: 20130724
  Transmission Date: 20140515
  Serious: No
  Sender: FDA-Public Use
  Company Number: US-TEVA-420878USA

PATIENT
  Sex: 0

DRUGS (2)
  1. TREANDA [Suspect]
  2. ALLOPURINOL [Concomitant]

REACTIONS (1)
  - Rash morbilliform [Unknown]
